FAERS Safety Report 8270946-5 (Version None)
Quarter: 2012Q2

REPORT INFORMATION
  Report Type: 
  Country: None (occurrence: None)
  Receive Date: 20120410
  Receipt Date: 20120404
  Transmission Date: 20120825
  Serious: Yes (Other)
  Sender: FDA-Public Use
  Company Number: SE-PFIZER INC-2012084659

PATIENT
  Age: 57 Year
  Sex: Female

DRUGS (1)
  1. EFFEXOR [Suspect]
     Indication: DEPRESSION
     Dosage: 75 MG DAILY
     Route: 048
     Dates: start: 20120120, end: 20120122

REACTIONS (6)
  - VISION BLURRED [None]
  - DIPLOPIA [None]
  - VITH NERVE PARESIS [None]
  - CHEST PAIN [None]
  - PALPITATIONS [None]
  - HEADACHE [None]
